FAERS Safety Report 22076312 (Version 4)
Quarter: 2024Q1

REPORT INFORMATION
  Report Type: Report from Study
  Country: US (occurrence: US)
  Receive Date: 20230309
  Receipt Date: 20240202
  Transmission Date: 20240409
  Serious: Yes (Other)
  Sender: FDA-Public Use
  Company Number: US-ABBVIE-4332106

PATIENT
  Age: 50 Year
  Sex: Female

DRUGS (4)
  1. SKYRIZI [Suspect]
     Active Substance: RISANKIZUMAB-RZAA
     Indication: Psoriatic arthropathy
     Dosage: 150 MG
     Route: 058
     Dates: start: 20221019
  2. SKYRIZI [Suspect]
     Active Substance: RISANKIZUMAB-RZAA
     Indication: Psoriasis
     Dosage: FORM STRENGTH: 150 MILLIGRAM
     Route: 058
     Dates: start: 20220727, end: 20220727
  3. SKYRIZI [Suspect]
     Active Substance: RISANKIZUMAB-RZAA
  4. SKYRIZI [Suspect]
     Active Substance: RISANKIZUMAB-RZAA
     Dosage: WEEK 4, 150 MG
     Route: 058
     Dates: start: 20220824, end: 20220824

REACTIONS (17)
  - Sleeve gastrectomy [Unknown]
  - Gallbladder operation [Recovered/Resolved]
  - Nausea [Unknown]
  - Dyspepsia [Unknown]
  - Nervous system disorder [Recovering/Resolving]
  - Metabolic surgery [Unknown]
  - Incision site discharge [Unknown]
  - Hypoaesthesia [Not Recovered/Not Resolved]
  - Impaired healing [Unknown]
  - Psoriasis [Not Recovered/Not Resolved]
  - Paraesthesia [Unknown]
  - Abdominal discomfort [Not Recovered/Not Resolved]
  - Pain [Not Recovered/Not Resolved]
  - Vitamin B1 deficiency [Unknown]
  - Therapeutic response shortened [Not Recovered/Not Resolved]
  - Limb discomfort [Unknown]
  - Pain in extremity [Unknown]

NARRATIVE: CASE EVENT DATE: 20230101
